FAERS Safety Report 8203981-3 (Version None)
Quarter: 2012Q1

REPORT INFORMATION
  Report Type: 
  Country: None (occurrence: None)
  Receive Date: 20120313
  Receipt Date: 20120307
  Transmission Date: 20120608
  Serious: Yes (Hospitalization, Other)
  Sender: FDA-Public Use
  Company Number: KR-BAYER-2012-003054

PATIENT
  Age: 61 Year
  Sex: Male
  Weight: 71 kg

DRUGS (10)
  1. SORAFENIB (RAF KINASE INHIBITOR) [Suspect]
     Dosage: 400 MG, QD, CYCLE 4
     Dates: start: 20120203, end: 20120224
  2. CAPECITABINE [Suspect]
     Dosage: 1150 MG, BID (1200 MG/M2/DAY)
     Dates: start: 20120203, end: 20120217
  3. SORAFENIB (RAF KINASE INHIBITOR) [Suspect]
     Indication: GASTRIC CANCER
     Dosage: UNK
     Dates: start: 20111114
  4. CAPECITABINE [Suspect]
     Indication: GASTRIC CANCER
     Dosage: UNK
     Dates: start: 20111114
  5. CAPECITABINE [Suspect]
     Dosage: 1500 MG, BID (1600 MG/M2/DAY)
     Dates: start: 20111226, end: 20120108
  6. SORAFENIB (RAF KINASE INHIBITOR) [Suspect]
     Dosage: 400 MG, BID, CYCLE 3
     Dates: start: 20111226, end: 20120108
  7. SORAFENIB (RAF KINASE INHIBITOR) [Suspect]
     Dosage: UNK
     Dates: start: 20120303
  8. CISPLATIN [Suspect]
     Indication: GASTRIC CANCER
     Dosage: UNK
     Dates: start: 20111114, end: 20111114
  9. CISPLATIN [Suspect]
     Dosage: 82 MG, QD (45 MG/M2)
     Dates: start: 20120203
  10. CISPLATIN [Suspect]
     Dosage: 115 MG, QD
     Dates: start: 20111226, end: 20111226

REACTIONS (5)
  - DEEP VEIN THROMBOSIS [None]
  - PULMONARY EMBOLISM [None]
  - PNEUMONIA [None]
  - FEBRILE NEUTROPENIA [None]
  - OBSTRUCTION GASTRIC [None]
